FAERS Safety Report 7298692-5 (Version None)
Quarter: 2011Q1

REPORT INFORMATION
  Report Type: 
  Country: None (occurrence: None)
  Receive Date: 20110209
  Receipt Date: 20110125
  Transmission Date: 20110831
  Serious: Yes (Life-Threatening)
  Sender: FDA-Public Use
  Company Number: FK201100095

PATIENT
  Age: 69 Year
  Sex: Male

DRUGS (3)
  1. REMIFENTANIL (REMIFENTANIL) (REMFENTANIL) [Concomitant]
  2. BUPIVACAINE (BUPIVACAINE) (BUPVACAINE) [Concomitant]
  3. ROCURONIUM (MANUFACTURER UNKNOWN) (ROCURONIUM) (ROCURONIUM) [Suspect]
     Indication: INDUCTION OF ANAESTHESIA

REACTIONS (2)
  - ANAPHYLACTIC SHOCK [None]
  - CARDIAC ARREST [None]
